FAERS Safety Report 5525552-X (Version None)
Quarter: 2007Q4

REPORT INFORMATION
  Report Type: 
  Country: None (occurrence: None)
  Receive Date: 20071126
  Receipt Date: 20071115
  Transmission Date: 20080405
  Serious: Yes (Other)
  Sender: FDA-Public Use
  Company Number: B0489650A

PATIENT
  Sex: Male
  Weight: 95 kg

DRUGS (1)
  1. FLIXOTIDE [Suspect]
     Indication: ASTHMA
     Route: 055
     Dates: start: 20010806

REACTIONS (5)
  - COUGH [None]
  - DRUG INEFFECTIVE [None]
  - INCORRECT DOSE ADMINISTERED [None]
  - SLEEP DISORDER [None]
  - TREATMENT NONCOMPLIANCE [None]
